FAERS Safety Report 17533365 (Version 1)
Quarter: 2020Q1

REPORT INFORMATION
  Report Type: Report from Study
  Country: US (occurrence: US)
  Receive Date: 20200312
  Receipt Date: 20200312
  Transmission Date: 20200409
  Serious: Yes (Hospitalization)
  Sender: FDA-Public Use
  Company Number: US-CELGENEUS-USA-20200303394

PATIENT
  Age: 54 Year
  Sex: Male
  Weight: 71.7 kg

DRUGS (3)
  1. NIVOLUMAB [Suspect]
     Active Substance: NIVOLUMAB
     Indication: OROPHARYNGEAL CANCER
     Dosage: 360 MILLIGRAM
     Route: 065
     Dates: start: 20191202, end: 20191230
  2. CISPLATIN. [Suspect]
     Active Substance: CISPLATIN
     Indication: OROPHARYNGEAL CANCER
     Dosage: 200 MILLIGRAM
     Route: 065
     Dates: start: 20200217, end: 20200309
  3. ABRAXANE [Suspect]
     Active Substance: PACLITAXEL
     Indication: OROPHARYNGEAL CANCER
     Dosage: 100 MILLIGRAM
     Route: 065
     Dates: start: 20191202, end: 20200210

REACTIONS (2)
  - Unevaluable event [Unknown]
  - Pain [Unknown]

NARRATIVE: CASE EVENT DATE: 20200309
